FAERS Safety Report 13779904 (Version 1)
Quarter: 2017Q3

REPORT INFORMATION
  Report Type: Report from Study
  Country: BR (occurrence: BR)
  Receive Date: 20170723
  Receipt Date: 20170723
  Transmission Date: 20171127
  Serious: Yes (Life-Threatening, Other)
  Sender: FDA-Public Use
  Company Number: PHHY2017BR068462

PATIENT
  Sex: Female
  Weight: 52 kg

DRUGS (1)
  1. COSENTYX [Suspect]
     Active Substance: SECUKINUMAB
     Indication: PSORIASIS
     Dosage: 300 MG, QW (150 MG 2 PENS)
     Route: 058
     Dates: start: 20170406, end: 201705

REACTIONS (9)
  - Apparent death [Unknown]
  - Ocular hyperaemia [Unknown]
  - Throat tightness [Unknown]
  - Pruritus [Recovering/Resolving]
  - Eye pruritus [Recovered/Resolved]
  - Blister [Unknown]
  - Urticaria chronic [Not Recovered/Not Resolved]
  - Eye irritation [Unknown]
  - Eye disorder [Unknown]
